FAERS Safety Report 5131096-X (Version None)
Quarter: 2006Q3

REPORT INFORMATION
  Report Type: 
  Country: None (occurrence: None)
  Receive Date: 20060825
  Receipt Date: 20060323
  Transmission Date: 20061208
  Serious: Yes (Hospitalization)
  Sender: FDA-Public Use
  Company Number: 2006041340

PATIENT
  Age: 43 Year
  Sex: Female
  Weight: 58.0604 kg

DRUGS (7)
  1. VFEND [Suspect]
     Indication: ASPERGILLOSIS
     Dosage: 800 MG (400 MG,2 IN  1 D),ORAL
     Route: 048
     Dates: start: 20051101
  2. PAXIL [Suspect]
     Indication: ILL-DEFINED DISORDER
     Dosage: (10 MG)
  3. PROTONIX [Suspect]
     Indication: ILL-DEFINED DISORDER
     Dates: end: 20060101
  4. AMBIEN [Concomitant]
  5. LOPRESSOR [Concomitant]
  6. WARFARIN SODIUM [Concomitant]
  7. FENTANYL [Concomitant]

REACTIONS (5)
  - ARTHRALGIA [None]
  - BLOOD ALKALINE PHOSPHATASE INCREASED [None]
  - BODY TEMPERATURE INCREASED [None]
  - DECREASED APPETITE [None]
  - INFLAMMATION [None]
